FAERS Safety Report 21508273 (Version 1)
Quarter: 2022Q4

REPORT INFORMATION
  Report Type: Spontaneous
  Country: US (occurrence: None)
  Receive Date: 20221025
  Receipt Date: 20221025
  Transmission Date: 20230113
  Serious: Yes (Disabling)
  Sender: FDA-Public Use
  Company Number: None

PATIENT
  Age: 71 Year
  Sex: Male
  Weight: 121.5 kg

DRUGS (4)
  1. OXYCODONE [Suspect]
     Active Substance: OXYCODONE
     Indication: Pain
     Dosage: OTHER QUANTITY : 180 TABLET(S);?FREQUENCY : EVERY 4 HOURS;?
     Route: 048
     Dates: start: 20221019
  2. ELIQUIS [Concomitant]
     Active Substance: APIXABAN
  3. ZETIA [Concomitant]
     Active Substance: EZETIMIBE
  4. VICKS NYQUIL [Concomitant]
     Active Substance: ACETAMINOPHEN\DEXTROMETHORPHAN HYDROBROMIDE\DOXYLAMINE SUCCINATE

REACTIONS (6)
  - Product substitution issue [None]
  - Dizziness [None]
  - Visual impairment [None]
  - Abdominal discomfort [None]
  - Therapeutic product effect decreased [None]
  - Product physical issue [None]

NARRATIVE: CASE EVENT DATE: 20221019
